FAERS Safety Report 4551562-5 (Version None)
Quarter: 2005Q1

REPORT INFORMATION
  Report Type: 
  Country: None (occurrence: None)
  Receive Date: 20050112
  Receipt Date: 20041221
  Transmission Date: 20050727
  Serious: Yes (Death)
  Sender: FDA-Public Use
  Company Number: 2004117970

PATIENT
  Age: 48 Year
  Sex: Female
  Weight: 70.7611 kg

DRUGS (13)
  1. BEXTRA [Suspect]
     Indication: PAIN
     Dosage: 10 MG (10 MG, 1 IN 1 D), ORAL
     Route: 048
     Dates: start: 20020101
  2. ZOLPIDEM TARTRATE [Concomitant]
  3. LEVOTHYROXINE SODIUM [Concomitant]
  4. ALPRAZOLAM [Concomitant]
  5. BISACODYL (BISACODYL) [Concomitant]
  6. SALBUTAMOL (SALBUTAMOL) [Concomitant]
  7. MYLANTA (ALUMINIUM HYDROXIDE GEL, DRIED, MAGNESIUM HYDROXIDE, SIMETICO [Concomitant]
  8. WARFARIN (WARFARIN) [Concomitant]
  9. OXYCODONE (OXYCODONE) [Concomitant]
  10. CITALOPRAM HYDROBROMIDE [Concomitant]
  11. FAMOTIDINE [Concomitant]
  12. HYDROCORTISONE ACETATE (HYDROCORTISONE ACETATE) [Concomitant]
  13. OXYCODONE HCL [Concomitant]

REACTIONS (1)
  - DEATH [None]
